FAERS Safety Report 16510845 (Version 1)
Quarter: 2019Q3

REPORT INFORMATION
  Report Type: Report from Study
  Country: IT (occurrence: IT)
  Receive Date: 20190702
  Receipt Date: 20190702
  Transmission Date: 20191004
  Serious: Yes (Life-Threatening)
  Sender: FDA-Public Use
  Company Number: IT-ACCORD-135923

PATIENT
  Age: 20 Year
  Sex: Female

DRUGS (8)
  1. QUETIAPINE. [Suspect]
     Active Substance: QUETIAPINE
     Route: 048
     Dates: start: 20190404, end: 20190404
  2. AMISULPRIDE [Suspect]
     Active Substance: AMISULPRIDE
     Route: 048
     Dates: start: 20190404, end: 20190404
  3. NOVORAPID [Suspect]
     Active Substance: INSULIN ASPART
     Dosage: STRENGTH:100 UNITS / ML, SOLUTION FOR INJECTION IN PRE-FILLED PERFUSION
     Route: 058
     Dates: start: 20190404, end: 20190404
  4. AZITHROMYCIN ANHYDROUS. [Suspect]
     Active Substance: AZITHROMYCIN ANHYDROUS
     Route: 048
     Dates: start: 20190404, end: 20190404
  5. PAROXETINE. [Suspect]
     Active Substance: PAROXETINE
     Route: 048
     Dates: start: 20190404, end: 20190404
  6. LOBIVON [Suspect]
     Active Substance: NEBIVOLOL HYDROCHLORIDE
     Dosage: STRENGTH: 5 MG
     Route: 048
     Dates: start: 20190404, end: 20190404
  7. TEGRETOL [Suspect]
     Active Substance: CARBAMAZEPINE
     Dosage: STRENGTH: 400 MG
     Route: 048
     Dates: start: 20190404, end: 20190404
  8. EN [Suspect]
     Active Substance: DELORAZEPAM
     Route: 048
     Dates: start: 20190404, end: 20190404

REACTIONS (3)
  - Hypoglycaemia [Recovering/Resolving]
  - Drug abuse [Unknown]
  - Respiratory failure [Recovering/Resolving]

NARRATIVE: CASE EVENT DATE: 20190404
